FAERS Safety Report 9580164 (Version 1)
Quarter: 2013Q4

REPORT INFORMATION
  Report Type: Spontaneous
  Country: US (occurrence: US)
  Receive Date: 20131002
  Receipt Date: 20131002
  Transmission Date: 20140711
  Serious: Yes (Death, Other)
  Sender: FDA-Public Use
  Company Number: PHHY2013US107281

PATIENT
  Age: 78 Year
  Sex: Female

DRUGS (1)
  1. METHOTREXATE [Suspect]

REACTIONS (5)
  - Death [Fatal]
  - Toxicity to various agents [Unknown]
  - Psoriasis [Unknown]
  - Skin ulcer [Unknown]
  - Pancytopenia [Unknown]
